FAERS Safety Report 4490458-4 (Version None)
Quarter: 2004Q4

REPORT INFORMATION
  Report Type: 
  Country: None (occurrence: None)
  Receive Date: 20041102
  Receipt Date: 20040924
  Transmission Date: 20050328
  Serious: Yes (Death, Hospitalization, Other)
  Sender: FDA-Public Use
  Company Number: 200412902EU

PATIENT
  Age: 65 Year
  Sex: Male

DRUGS (11)
  1. TAXOTERE [Suspect]
     Route: 042
     Dates: start: 20040730, end: 20040827
  2. GEMZAR [Concomitant]
     Dates: end: 20040101
  3. CISPLATIN [Concomitant]
     Dates: end: 20040101
  4. BISOPROLOL FUMARATE [Concomitant]
     Indication: CARDIAC DISORDER
     Route: 048
     Dates: start: 20030601, end: 20040917
  5. ASPIRIN [Concomitant]
     Indication: CARDIAC DISORDER
     Route: 048
     Dates: start: 20030601, end: 20040917
  6. PLAVIX [Concomitant]
     Indication: CARDIAC DISORDER
     Route: 048
     Dates: start: 20030601, end: 20040917
  7. SIMVASTATIN [Concomitant]
     Indication: CARDIAC DISORDER
     Route: 048
     Dates: start: 20030601, end: 20040908
  8. LEVOXYL [Concomitant]
     Indication: HYPOTHYROIDISM
     Route: 048
     Dates: start: 19980101, end: 20040917
  9. MORPHINE SULFATE [Concomitant]
     Indication: LUNG NEOPLASM MALIGNANT
     Route: 048
     Dates: start: 20040601, end: 20040917
  10. DEXAMETHASONE [Concomitant]
     Indication: METASTASES TO CENTRAL NERVOUS SYSTEM
     Route: 048
     Dates: start: 20040701, end: 20040908
  11. RADIOTHERAPY [Concomitant]
     Indication: METASTASES TO CENTRAL NERVOUS SYSTEM
     Dates: end: 20040707

REACTIONS (6)
  - ACUTE RESPIRATORY DISTRESS SYNDROME [None]
  - INTERSTITIAL LUNG DISEASE [None]
  - PULMONARY EMBOLISM [None]
  - PULMONARY TOXICITY [None]
  - RESPIRATORY DISTRESS [None]
  - RESPIRATORY FAILURE [None]
